FAERS Safety Report 8162995-2 (Version None)
Quarter: 2012Q1

REPORT INFORMATION
  Report Type: 
  Country: None (occurrence: None)
  Receive Date: 20120224
  Receipt Date: 20120220
  Transmission Date: 20120608
  Serious: Yes (Other)
  Sender: FDA-Public Use
  Company Number: US-PFIZER INC-2012044616

PATIENT
  Sex: Female
  Weight: 63.492 kg

DRUGS (8)
  1. LOSARTAN [Concomitant]
     Indication: HYPERTENSION
     Dosage: 50 MG, DAILY
  2. EFFEXOR XR [Suspect]
     Indication: DEPRESSION
     Dosage: 75 MG, DAILY
     Dates: end: 20110501
  3. ZOLOFT [Suspect]
     Indication: DEPRESSION
     Dosage: UNK
     Dates: start: 20020101
  4. VITAMIN D [Concomitant]
     Dosage: UNKN, DAILY
  5. HYDROCHLOROTHIAZIDE [Concomitant]
     Indication: HYPERTENSION
     Dosage: 12.5 MG, ALTERNATE DAY
  6. VENLAFAXINE HCL [Suspect]
     Indication: DEPRESSION
     Dosage: 75 MG, DAILY
     Dates: start: 20110501
  7. EFFEXOR XR [Suspect]
     Dosage: UNK
  8. XANAX [Suspect]
     Indication: ANXIETY
     Dosage: UNKN, DAILY

REACTIONS (6)
  - FEELING DRUNK [None]
  - NERVOUSNESS [None]
  - EMOTIONAL DISORDER [None]
  - DEPRESSION [None]
  - ANXIETY [None]
  - SOMNOLENCE [None]
